FAERS Safety Report 16241698 (Version 2)
Quarter: 2019Q3

REPORT INFORMATION
  Report Type: Report from Study
  Country: None (occurrence: PR)
  Receive Date: 20190426
  Receipt Date: 20190921
  Transmission Date: 20191004
  Serious: Yes (Other)
  Sender: FDA-Public Use
  Company Number: PR-ABBVIE-19K-131-2668694-00

PATIENT
  Age: 42 Year
  Sex: Female
  Weight: 101.7 kg

DRUGS (1)
  1. HUMIRA [Suspect]
     Active Substance: ADALIMUMAB
     Indication: RHEUMATOID ARTHRITIS
     Route: 058
     Dates: start: 20180716

REACTIONS (5)
  - Hysterectomy [Unknown]
  - Sinusitis [Not Recovered/Not Resolved]
  - Meniscus operation [Unknown]
  - Shoulder arthroplasty [Recovered/Resolved]
  - Shoulder arthroplasty [Unknown]

NARRATIVE: CASE EVENT DATE: 20180831
